FAERS Safety Report 8409073 (Version 3)
Quarter: 2012Q4

REPORT INFORMATION
  Report Type: 
  Country: US (occurrence: US)
  Receive Date: 20120216
  Receipt Date: 20121114
  Transmission Date: 20130627
  Serious: Yes (Death)
  Sender: FDA-Public Use
  Company Number: PHEH2012US003642

PATIENT
  Sex: Male
  Weight: 82 kg

DRUGS (1)
  1. ZOMETA [Suspect]
     Dosage: 4 mg/ 5 ml, QMO

REACTIONS (1)
  - Prostate cancer metastatic [Fatal]
